FAERS Safety Report 5605338-8 (Version None)
Quarter: 2008Q1

REPORT INFORMATION
  Report Type: 
  Country: None (occurrence: None)
  Receive Date: 20080129
  Receipt Date: 20080116
  Transmission Date: 20080703
  Serious: Yes (Other)
  Sender: FDA-Public Use
  Company Number: US-PFIZER INC-2008006521

PATIENT
  Sex: Male
  Weight: 78.636 kg

DRUGS (3)
  1. CHANTIX [Suspect]
     Indication: SMOKING CESSATION THERAPY
  2. TAPAZOLE [Suspect]
     Indication: HYPERTHYROIDISM
     Dosage: FREQ:BID
     Dates: start: 20080110, end: 20080111
  3. SLEEP AID [Concomitant]

REACTIONS (7)
  - DYSPNOEA [None]
  - HEART RATE INCREASED [None]
  - HORMONE LEVEL ABNORMAL [None]
  - HYPERTHYROIDISM [None]
  - RASH [None]
  - TREMOR [None]
  - WEIGHT DECREASED [None]
